FAERS Safety Report 24208976 (Version 1)
Quarter: 2024Q3

REPORT INFORMATION
  Report Type: Report from Study
  Country: JP (occurrence: JP)
  Receive Date: 20240814
  Receipt Date: 20240814
  Transmission Date: 20241017
  Serious: Yes (Death, Hospitalization, Other)
  Sender: INSMED
  Company Number: JP-INSMED-2023-04094-JPAA

PATIENT
  Age: 78 Year
  Sex: Female
  Weight: 34 kg

DRUGS (13)
  1. ARIKAYCE [Suspect]
     Active Substance: AMIKACIN
     Indication: Mycobacterium avium complex infection
     Dosage: 590 MILLIGRAM, QD
     Route: 055
     Dates: start: 20231015, end: 20231102
  2. AVELOX [Concomitant]
     Active Substance: MOXIFLOXACIN HYDROCHLORIDE
     Indication: Mycobacterium avium complex infection
     Dosage: 400 MILLIGRAM, QD
     Route: 048
     Dates: start: 202305, end: 20240101
  3. RIFAMPIN [Concomitant]
     Active Substance: RIFAMPIN
     Indication: Mycobacterium avium complex infection
     Dosage: UNK, UNK
     Route: 065
  4. RIFAMPIN [Concomitant]
     Active Substance: RIFAMPIN
     Dosage: 450 MILLIGRAM, QD
     Route: 048
     Dates: start: 202305, end: 20240101
  5. ETHIONAMIDE [Concomitant]
     Active Substance: ETHIONAMIDE
     Indication: Mycobacterium avium complex infection
     Dosage: 200 MILLIGRAM, QD
     Route: 048
     Dates: start: 202305, end: 20240101
  6. MIYA-BM [Concomitant]
     Active Substance: CLOSTRIDIUM BUTYRICUM SPORES STRAIN M-55
     Indication: Enterocolitis
     Dosage: 3 TABLETS, DAILY
     Route: 048
     Dates: end: 20240101
  7. SODIUM CHLORIDE [Concomitant]
     Active Substance: SODIUM CHLORIDE
     Indication: Hyponatraemia
     Dosage: 6 GRAM/DAY
     Route: 048
     Dates: end: 20240101
  8. METOCLOPRAMIDE [Concomitant]
     Active Substance: METOCLOPRAMIDE
     Indication: Nausea
     Dosage: 15 MILLIGRAM/DAY
     Route: 048
     Dates: end: 20240101
  9. HERBALS [Concomitant]
     Active Substance: HERBALS
     Indication: Mycobacterium avium complex infection
     Dosage: 9 GRAM/DAY
     Route: 048
     Dates: end: 20240101
  10. OLMESARTAN [Concomitant]
     Active Substance: OLMESARTAN
     Indication: Hypertension
     Dosage: 20 MILLIGRAM, QD
     Route: 048
     Dates: end: 20240101
  11. ROSUVASTATIN [Concomitant]
     Active Substance: ROSUVASTATIN\ROSUVASTATIN CALCIUM
     Indication: Dyslipidaemia
     Dosage: 2.5 MILLIGRAM, QD
     Route: 048
     Dates: end: 20240101
  12. NIFEDIPINE [Concomitant]
     Active Substance: NIFEDIPINE
     Indication: Hypertension
     Dosage: 10 MILLIGRAM, QD
     Route: 048
     Dates: end: 20240101
  13. ESOMEPRAZOLE [Concomitant]
     Active Substance: ESOMEPRAZOLE
     Indication: Gastritis
     Dosage: 10 MILLIGRAM, QD
     Route: 048
     Dates: end: 20240101

REACTIONS (6)
  - Interstitial lung disease [Fatal]
  - Rib fracture [Unknown]
  - Cough [Unknown]
  - Wrong technique in product usage process [Unknown]
  - Therapy interrupted [Unknown]
  - Device issue [Unknown]

NARRATIVE: CASE EVENT DATE: 20231001
